FAERS Safety Report 25385041 (Version 4)
Quarter: 2025Q2

REPORT INFORMATION
  Report Type: Spontaneous
  Country: CZ (occurrence: CZ)
  Receive Date: 20250602
  Receipt Date: 20250620
  Transmission Date: 20250716
  Serious: Yes (Death, Hospitalization, Other)
  Sender: GLAXOSMITHKLINE
  Company Number: CZ-GSK-CZ2025EME068404

PATIENT
  Sex: Female

DRUGS (1)
  1. NIRAPARIB [Suspect]
     Active Substance: NIRAPARIB
     Indication: Ovarian cancer
     Dosage: 200 MG, QD

REACTIONS (9)
  - Pulmonary embolism [Fatal]
  - Malignant neoplasm progression [Fatal]
  - Ascites [Fatal]
  - Back pain [Unknown]
  - Muscle spasms [Unknown]
  - Arthralgia [Unknown]
  - Vertigo [Unknown]
  - Vomiting [Unknown]
  - Drug intolerance [Unknown]

NARRATIVE: CASE EVENT DATE: 20221115
